FAERS Safety Report 23883017 (Version 1)
Quarter: 2024Q2

REPORT INFORMATION
  Report Type: Other
  Country: CA (occurrence: CA)
  Receive Date: 20240522
  Receipt Date: 20240522
  Transmission Date: 20240716
  Serious: Yes (Hospitalization)
  Sender: FDA-Public Use
  Company Number: CA-APOTEX-2024AP005922

PATIENT
  Age: 42 Year
  Sex: Male

DRUGS (1)
  1. DIVALPROEX SODIUM [Suspect]
     Active Substance: DIVALPROEX SODIUM
     Indication: Product used for unknown indication
     Dosage: 500 MILLIGRAM, BID
     Route: 048

REACTIONS (5)
  - Substance use [Recovered/Resolved]
  - Inappropriate schedule of product administration [Recovered/Resolved]
  - Product dose omission issue [Recovered/Resolved]
  - Psychotic disorder [Recovered/Resolved]
  - Aggression [Recovered/Resolved]
